FAERS Safety Report 9295108 (Version 1)
Quarter: 2013Q2

REPORT INFORMATION
  Report Type: Spontaneous
  Country: US (occurrence: None)
  Receive Date: 20130516
  Receipt Date: 20130516
  Transmission Date: 20140414
  Serious: No
  Sender: FDA-Public Use
  Company Number: None

PATIENT
  Age: 44 Year
  Sex: Female
  Weight: 69 kg

DRUGS (1)
  1. PARAGARD IUD SUPPOSED TO BE HORMONE FREE PARAGARD [Suspect]
     Indication: CONTRACEPTION
     Dosage: ONE IUD Q 10 YEARS INTRA-UTERI
     Route: 015

REACTIONS (2)
  - Device breakage [None]
  - Device dislocation [None]
